FAERS Safety Report 4874117-1 (Version None)
Quarter: 2006Q1

REPORT INFORMATION
  Report Type: 
  Country: None (occurrence: None)
  Receive Date: 20060106
  Receipt Date: 20051226
  Transmission Date: 20060701
  Serious: Yes (Hospitalization)
  Sender: FDA-Public Use
  Company Number: US-KINGPHARMUSA00001-K200501637

PATIENT
  Age: 65 Year
  Sex: Male
  Weight: 62 kg

DRUGS (9)
  1. ALTACE [Suspect]
     Indication: ACUTE MYOCARDIAL INFARCTION
     Dosage: 5 MG, UNK
     Route: 048
     Dates: start: 20050307, end: 20050309
  2. ENOXAPARIN [Suspect]
     Indication: MYOCARDIAL INFARCTION
     Dosage: 150 MG, BID
     Route: 058
     Dates: start: 20050306, end: 20050308
  3. HEPARIN [Suspect]
     Indication: MYOCARDIAL INFARCTION
     Dosage: 30000 IU, UNK
     Route: 042
     Dates: start: 20050306, end: 20050308
  4. ASPIRIN [Suspect]
     Indication: MYOCARDIAL INFARCTION
     Dosage: 100 MG, UNK
     Route: 048
     Dates: start: 20050306
  5. ACTIVASE [Suspect]
     Indication: MYOCARDIAL INFARCTION
     Dosage: 100 MG, UNK
     Route: 042
     Dates: start: 20050306, end: 20050306
  6. CLOPIDOGREL [Concomitant]
     Indication: ACUTE MYOCARDIAL INFARCTION
     Dosage: 75 MG, UNK
     Route: 048
     Dates: start: 20050306
  7. METOPROLOL [Concomitant]
     Indication: ACUTE MYOCARDIAL INFARCTION
     Dosage: 25 MG, UNK
     Route: 048
     Dates: start: 20050307
  8. SIMVASTATIN [Concomitant]
     Dosage: 40 MG, UNK
     Route: 048
     Dates: start: 20050306
  9. OXAZEPAM [Concomitant]
     Indication: ANXIETY
     Dosage: 20 MG, UNK
     Route: 048
     Dates: start: 20050306

REACTIONS (2)
  - RENAL FAILURE ACUTE [None]
  - URINARY RETENTION [None]
